FAERS Safety Report 9431314 (Version 2)
Quarter: 2014Q1

REPORT INFORMATION
  Report Type: Spontaneous
  Country: US (occurrence: US)
  Receive Date: 20130730
  Receipt Date: 20140127
  Transmission Date: 20141002
  Serious: Yes (Death, Hospitalization)
  Sender: FDA-Public Use
  Company Number: US-B.I. PHARMACEUTICALS,INC./RIDGEFIELD-2013-BI-22583BP

PATIENT
  Age: 65 Year
  Sex: Male
  Weight: 106.59 kg

DRUGS (11)
  1. PRADAXA [Suspect]
     Dosage: 300 MG
     Dates: start: 20110401, end: 20120711
  2. METOPROLOL [Concomitant]
     Dosage: 100 MG
     Route: 048
  3. LASIX [Concomitant]
     Dosage: 20 MG
     Route: 048
  4. FLOMAX [Concomitant]
     Dosage: 0.4 MG
     Route: 048
  5. NEURONTIN [Concomitant]
     Dosage: 900 MG
     Route: 048
  6. NORVASC [Concomitant]
     Dosage: 10 MG
     Route: 048
  7. PRILOSEC [Concomitant]
     Dosage: 40 MG
     Route: 048
  8. LISINOPRIL [Concomitant]
     Dosage: 40 MG
     Route: 048
  9. METFORMIN [Concomitant]
     Dosage: 1000 MG
     Route: 048
  10. ZYLOPRIM [Concomitant]
     Dosage: 300 MG
     Route: 048
  11. ZOCOR [Concomitant]
     Dosage: 40 MG
     Route: 048

REACTIONS (2)
  - Haemorrhage [Fatal]
  - Renal failure acute [Fatal]
